FAERS Safety Report 22596491 (Version 2)
Quarter: 2023Q2

REPORT INFORMATION
  Report Type: Spontaneous
  Country: US (occurrence: US)
  Receive Date: 20230613
  Receipt Date: 20230622
  Transmission Date: 20230721
  Serious: No
  Sender: FDA-Public Use
  Company Number: US-Calliditas-2023CAL00528

PATIENT
  Age: 43 Year
  Sex: Female

DRUGS (5)
  1. TARPEYO [Suspect]
     Active Substance: BUDESONIDE
     Indication: IgA nephropathy
     Dosage: 16 MG (4 MG CAPSULES) ONCE DAILY
     Route: 048
     Dates: start: 20230406, end: 20230606
  2. TARPEYO [Suspect]
     Active Substance: BUDESONIDE
     Indication: IgA nephropathy
     Dosage: 8 MG (4 MG CAPSULES) ONCE DAILY
     Route: 048
     Dates: start: 20230607
  3. VITAMINS [Concomitant]
     Active Substance: VITAMINS
  4. LOSARTAN [Concomitant]
     Active Substance: LOSARTAN
  5. CLARITIN [Concomitant]
     Active Substance: LORATADINE

REACTIONS (4)
  - Initial insomnia [Recovered/Resolved]
  - Intentional underdose [Not Recovered/Not Resolved]
  - Insomnia [Recovered/Resolved]
  - Hunger [Not Recovered/Not Resolved]

NARRATIVE: CASE EVENT DATE: 20230606
